FAERS Safety Report 5701794-5 (Version None)
Quarter: 2008Q2

REPORT INFORMATION
  Report Type: 
  Country: None (occurrence: None)
  Receive Date: 20080410
  Receipt Date: 20080410
  Transmission Date: 20081010
  Serious: Yes (Other)
  Sender: FDA-Public Use
  Company Number: None

PATIENT
  Sex: Female
  Weight: 65.7716 kg

DRUGS (3)
  1. SULFAMETHOXAZOLE AND TRIMETHOPRIM [Suspect]
     Indication: INFECTION PROPHYLAXIS
     Dosage: 1 CAPSULE DAILY MOUTH
     Route: 048
     Dates: start: 20080204, end: 20080211
  2. LISONPRIL [Concomitant]
  3. CARVEDILOL [Concomitant]

REACTIONS (3)
  - BLEEDING VARICOSE VEIN [None]
  - HAEMORRHAGE SUBCUTANEOUS [None]
  - TREATMENT NONCOMPLIANCE [None]
